FAERS Safety Report 6516483-7 (Version None)
Quarter: 2009Q4

REPORT INFORMATION
  Report Type: 
  Country: None (occurrence: None)
  Receive Date: 20091223
  Receipt Date: 20091208
  Transmission Date: 20100525
  Serious: No
  Sender: FDA-Public Use
  Company Number: US-BAYER-200917276NA

PATIENT
  Age: 46 Year
  Sex: Female
  Weight: 57 kg

DRUGS (2)
  1. MAGNEVIST [Suspect]
     Indication: DRUG USE FOR UNKNOWN INDICATION
  2. MULTIHANCE [Suspect]
     Indication: NUCLEAR MAGNETIC RESONANCE IMAGING BRAIN
     Dosage: AS USED: 12 ML
     Route: 042
     Dates: start: 20090311, end: 20090311

REACTIONS (1)
  - URTICARIA [None]
